FAERS Safety Report 5710095-0 (Version None)
Quarter: 2008Q2

REPORT INFORMATION
  Report Type: 
  Country: None (occurrence: None)
  Receive Date: 20080418
  Receipt Date: 20071030
  Transmission Date: 20081010
  Serious: No
  Sender: FDA-Public Use
  Company Number: US-ASTRAZENECA-2007UW25355

PATIENT
  Age: 50 Year
  Sex: Female

DRUGS (6)
  1. METOPROLOL SUCCINATE [Suspect]
     Route: 048
     Dates: start: 20070801
  2. DIOVAN [Concomitant]
  3. SINGULAIR [Concomitant]
  4. LEXOVYL [Concomitant]
  5. PULMICORT [Concomitant]
  6. ALBUTEROL [Concomitant]

REACTIONS (1)
  - HYPERTENSION [None]
